FAERS Safety Report 13198021 (Version 1)
Quarter: 2017Q1

REPORT INFORMATION
  Report Type: Spontaneous
  Country: US (occurrence: US)
  Receive Date: 20170208
  Receipt Date: 20170208
  Transmission Date: 20170428
  Serious: No
  Sender: FDA-Public Use
  Company Number: US-PERRIGO-16US021671

PATIENT
  Sex: Male

DRUGS (1)
  1. IBUPROFEN AND DIPHENHYDRAMINE CITRATE [Suspect]
     Active Substance: DIPHENHYDRAMINE CITRATE\IBUPROFEN
     Indication: WRONG DRUG ADMINISTERED
     Dosage: 2 TABLETS, 4 TO 6 TIMES DAILY
     Route: 048
     Dates: start: 201611

REACTIONS (2)
  - Accidental overdose [Unknown]
  - Product name confusion [Unknown]

NARRATIVE: CASE EVENT DATE: 201611
